FAERS Safety Report 5136147-4 (Version None)
Quarter: 2006Q4

REPORT INFORMATION
  Report Type: 
  Country: None (occurrence: None)
  Receive Date: 20061027
  Receipt Date: 20060113
  Transmission Date: 20070319
  Serious: Yes (Hospitalization)
  Sender: FDA-Public Use
  Company Number: AR-BRISTOL-MYERS SQUIBB COMPANY-13247044

PATIENT
  Age: 79 Year
  Sex: Female

DRUGS (8)
  1. IRBESARTAN [Suspect]
     Indication: CARDIAC FAILURE
     Dosage: PREVIOUS DOSES OF STUDY DRUG: 75 MG 04-MAR-2003 TO 17-MAR-2003; 150 MG 18-MAR-2003 TO 01-APR-2003
     Route: 048
     Dates: start: 20030304
  2. BLINDED: PLACEBO [Suspect]
     Indication: CARDIAC FAILURE
     Route: 048
     Dates: start: 20030304
  3. FUROSEMIDE [Concomitant]
     Dates: start: 20030218, end: 20051015
  4. ACENOCOUMAROL [Concomitant]
     Dates: start: 20030218, end: 20051015
  5. DIGOXIN [Concomitant]
     Dates: start: 20030218, end: 20051015
  6. SPIRONOLACTONE [Concomitant]
     Dates: start: 20050905, end: 20051015
  7. CARVEDILOL [Concomitant]
     Dates: start: 20050505, end: 20051015
  8. METFORMIN HCL [Concomitant]
     Dates: start: 20030218, end: 20051015

REACTIONS (5)
  - ATRIAL FIBRILLATION [None]
  - CARDIAC FAILURE [None]
  - HEPATOMEGALY [None]
  - PULMONARY OEDEMA [None]
  - RENAL FAILURE [None]
